FAERS Safety Report 19474776 (Version 1)
Quarter: 2021Q2

REPORT INFORMATION
  Report Type: Report from Study
  Country: ES (occurrence: ES)
  Receive Date: 20210629
  Receipt Date: 20210629
  Transmission Date: 20210717
  Serious: Yes (Life-Threatening, Hospitalization, Other)
  Sender: FDA-Public Use
  Company Number: ES-PFIZER INC-2021750764

PATIENT
  Age: 5 Year
  Sex: Female
  Weight: 22.5 kg

DRUGS (35)
  1. FENTANYL. [Suspect]
     Active Substance: FENTANYL
     Dosage: 30 UG, AS NEEDED (30 UG PRN)
     Dates: start: 20210329, end: 20210402
  2. MOVANTIK [Suspect]
     Active Substance: NALOXEGOL OXALATE
     Dosage: UNK
     Route: 048
  3. CLORAZEPATE [Suspect]
     Active Substance: CLORAZEPATE DIPOTASSIUM
     Dosage: UNK
  4. ACETAMINOPHEN. [Concomitant]
     Active Substance: ACETAMINOPHEN
     Indication: ANALGESIC THERAPY
  5. KETAMINE HCL [Suspect]
     Active Substance: KETAMINE HYDROCHLORIDE
     Dosage: 1.3 UG/KG, 1X/HOUR
     Dates: start: 20210330
  6. DEXMEDETOMIDINE. [Suspect]
     Active Substance: DEXMEDETOMIDINE
     Dosage: UNK
  7. RANITIDINE. [Concomitant]
     Active Substance: RANITIDINE
     Dosage: UNK
  8. AMOXICILLIN AND CLAVULANATE POTASSIUM [Concomitant]
     Active Substance: AMOXICILLIN\CLAVULANATE POTASSIUM
     Indication: PROPHYLAXIS
     Dosage: 575 MG, 3X/DAY
     Dates: start: 20210330, end: 20210403
  9. AMOXICILLIN AND CLAVULANATE POTASSIUM [Concomitant]
     Active Substance: AMOXICILLIN\CLAVULANATE POTASSIUM
     Dosage: 600 MG, 4X/DAY
     Dates: start: 20210403
  10. KETAMINE HCL [Suspect]
     Active Substance: KETAMINE HYDROCHLORIDE
     Dosage: 3.8 MG/KG, 1X/HOUR
     Dates: start: 20210402, end: 20210403
  11. SEVOFLURANE. [Suspect]
     Active Substance: SEVOFLURANE
     Indication: SEDATION
     Dosage: 0.15 UG/KG, CONTINUOUS/MIN
     Route: 048
     Dates: start: 20210405, end: 20210407
  12. MIDAZOLAM. [Suspect]
     Active Substance: MIDAZOLAM
     Dosage: 0.34 MG/KG, 1X/HOUR
     Dates: start: 20210402, end: 20210403
  13. MACROGOL [Concomitant]
     Active Substance: POLYETHYLENE GLYCOLS
     Indication: CONSTIPATION
     Dosage: 6.9 G, 3X/DAY
     Dates: start: 20210408
  14. CISATRACURIUM. [Concomitant]
     Active Substance: CISATRACURIUM
     Indication: SEDATION
     Dosage: 3 UG/KG, CONTINUOUS/MIN
     Dates: start: 20210329, end: 20210404
  15. FENTANYL. [Suspect]
     Active Substance: FENTANYL
     Dosage: 25 UG, AS NEEDED (25 UG PRN)
     Dates: start: 20210403
  16. FENTANYL. [Suspect]
     Active Substance: FENTANYL
     Dosage: 2.5 UG/KG, 1X/HOUR
     Dates: start: 20210403, end: 20210405
  17. ONDANSETRON [Concomitant]
     Active Substance: ONDANSETRON
     Indication: FEEDING INTOLERANCE
     Dosage: 25 MG, 4X/DAY
     Dates: start: 20210329
  18. EPINEPHRINE HYDROCHLORIDE. [Concomitant]
     Active Substance: EPINEPHRINE HYDROCHLORIDE
     Dosage: UNK
  19. ROCURONIUM [Concomitant]
     Active Substance: ROCURONIUM BROMIDE
     Indication: UPPER AIRWAY OBSTRUCTION
     Dosage: 7 MG, AS NEEDED
     Dates: start: 20210403, end: 20210404
  20. ACETAZOLAMIDE. [Concomitant]
     Active Substance: ACETAZOLAMIDE
     Indication: FISTULA
     Dosage: 120 MG, 2X/DAY
     Dates: start: 20210331, end: 20210403
  21. FENTANYL. [Suspect]
     Active Substance: FENTANYL
     Dosage: 3.5 UG/KG, 1X/HOUR
     Dates: start: 20210329, end: 20210402
  22. SEVOFLURANE. [Suspect]
     Active Substance: SEVOFLURANE
     Dosage: 10 ML, 1X/HOUR
     Route: 048
     Dates: start: 20210403, end: 20210407
  23. MIDAZOLAM. [Suspect]
     Active Substance: MIDAZOLAM
     Indication: SEDATION
     Dosage: 4.1 MG/KG, 1X/HOUR
     Dates: start: 20210329, end: 20210404
  24. DEXAMETHASONE. [Concomitant]
     Active Substance: DEXAMETHASONE
     Dosage: 4 MG, 3X/DAY
     Dates: start: 20210404
  25. KETAMINE HCL [Suspect]
     Active Substance: KETAMINE HYDROCHLORIDE
     Indication: SEDATION
     Dosage: 25 MG, AS NEEDED (25 MG PRN)
     Dates: start: 20210402, end: 20210403
  26. PROPOFOL HOSPIRA [Suspect]
     Active Substance: PROPOFOL
     Dosage: 20 MG, AS NEEDED (20 MG PRN)
     Dates: start: 20210401, end: 20210403
  27. SEVOFLURANE. [Suspect]
     Active Substance: SEVOFLURANE
     Dosage: 0.2 ML, AS NEEDED (0.2 ML PRN)
     Route: 048
     Dates: start: 20210403
  28. ONDANSETRON [Concomitant]
     Active Substance: ONDANSETRON
     Indication: PROPHYLAXIS
     Dosage: 4 MG, AS NEEDED
     Dates: start: 20210403
  29. ACETAMINOPHEN. [Concomitant]
     Active Substance: ACETAMINOPHEN
     Indication: SEDATION
     Dosage: 350 MG, 4X/DAY
     Dates: start: 20210329
  30. REMIFENTANIL HYDROCHLORIDE. [Suspect]
     Active Substance: REMIFENTANIL HYDROCHLORIDE
     Indication: WITHDRAWAL SYNDROME
     Dosage: 5 MG, AS NEEDED (5 MG PRN)
     Dates: start: 20210408, end: 20210411
  31. MIDAZOLAM. [Suspect]
     Active Substance: MIDAZOLAM
     Dosage: 2.5 ML, AS NEEDED (2.5 MG PRN)
     Dates: start: 20210402, end: 20210403
  32. BUDESONIDE. [Concomitant]
     Active Substance: BUDESONIDE
     Indication: UPPER AIRWAY OBSTRUCTION
     Dosage: 2 MG, SINGLE
     Dates: start: 20210403, end: 20210403
  33. FUROSEMIDE. [Concomitant]
     Active Substance: FUROSEMIDE
     Indication: FLUID OVERLOAD
     Dosage: 5 MG, 3X/DAY
     Dates: start: 20210331
  34. ACETAZOLAMIDE. [Concomitant]
     Active Substance: ACETAZOLAMIDE
     Indication: UPPER AIRWAY OBSTRUCTION
     Dosage: 5 MG, AS NEEDED
     Dates: start: 20210403, end: 20210403
  35. MOVANTIK [Suspect]
     Active Substance: NALOXEGOL OXALATE
     Dosage: UNK
     Route: 048

REACTIONS (3)
  - Laryngeal obstruction [Recovered/Resolved]
  - Off label use [Unknown]
  - Withdrawal syndrome [Recovered/Resolved]

NARRATIVE: CASE EVENT DATE: 20210403
